FAERS Safety Report 8360546-0 (Version None)
Quarter: 2012Q2

REPORT INFORMATION
  Report Type: 
  Country: None (occurrence: None)
  Receive Date: 20120515
  Receipt Date: 20120508
  Transmission Date: 20120825
  Serious: Yes (Other)
  Sender: FDA-Public Use
  Company Number: PHHY2012TR038662

PATIENT
  Age: 65 Year
  Weight: 74 kg

DRUGS (1)
  1. AFINITOR [Suspect]
     Indication: RENAL CELL CARCINOMA
     Dosage: 10 MG, UNK
     Dates: start: 20110530, end: 20120325

REACTIONS (2)
  - URINARY INCONTINENCE [None]
  - FAECAL INCONTINENCE [None]
